FAERS Safety Report 4790488-9 (Version None)
Quarter: 2005Q4

REPORT INFORMATION
  Report Type: 
  Country: None (occurrence: None)
  Receive Date: 20051005
  Receipt Date: 20050919
  Transmission Date: 20060501
  Serious: Yes (Hospitalization, Other)
  Sender: FDA-Public Use
  Company Number: USA0509108428

PATIENT
  Sex: Female

DRUGS (6)
  1. GEMZAR [Suspect]
     Indication: COLON CANCER METASTATIC
     Dosage: 2200 MG
     Dates: start: 20030113, end: 20030313
  2. GEMZAR [Suspect]
     Indication: METASTASES TO FALLOPIAN TUBE
     Dosage: 2200 MG
     Dates: start: 20030113, end: 20030313
  3. CARBOPLATIN [Concomitant]
  4. NEULASTA [Concomitant]
  5. KYTRIL [Concomitant]
  6. DECADRON   /CAN/  (DEXAMETHASONE) [Concomitant]

REACTIONS (8)
  - ANOREXIA [None]
  - CRYING [None]
  - FATIGUE [None]
  - FEELING ABNORMAL [None]
  - PLATELET COUNT DECREASED [None]
  - RENAL FAILURE [None]
  - SOMNOLENCE [None]
  - WRONG DRUG ADMINISTERED [None]
